FAERS Safety Report 16201847 (Version 3)
Quarter: 2019Q2

REPORT INFORMATION
  Report Type: Report from Study
  Country: AR (occurrence: AR)
  Receive Date: 20190416
  Receipt Date: 20190426
  Transmission Date: 20190711
  Serious: Yes (Death, Life-Threatening, Hospitalization, Other)
  Sender: FDA-Public Use
  Company Number: PHHY2019AR084641

PATIENT
  Age: 43 Year
  Sex: Female
  Weight: 94 kg

DRUGS (4)
  1. GENERIC LETROZOLE [Suspect]
     Active Substance: LETROZOLE
     Indication: BREAST CANCER
     Dosage: 2.5 MG, QD
     Route: 048
     Dates: start: 20180702, end: 20190328
  2. ABEMACICLIB [Suspect]
     Active Substance: ABEMACICLIB
     Indication: BREAST CANCER
     Dosage: 150 MG, BID
     Route: 048
     Dates: start: 20180702, end: 20190328
  3. URECARE 10% EURO [Concomitant]
     Indication: DERMATITIS ACNEIFORM
     Dosage: UNK
     Route: 065
     Dates: start: 20180717
  4. LEUPROLIDE [Suspect]
     Active Substance: LEUPROLIDE
     Indication: BREAST CANCER
     Dosage: 1 DF, UNK
     Route: 030
     Dates: end: 20190301

REACTIONS (14)
  - Encephalopathy [Fatal]
  - Metastases to liver [Unknown]
  - Hepatic failure [Fatal]
  - Ascites [Fatal]
  - Discomfort [Fatal]
  - Somnolence [Fatal]
  - Cystatin C increased [Unknown]
  - Blood urea increased [Unknown]
  - Malignant neoplasm progression [Fatal]
  - Tremor [Fatal]
  - Neutrophil count decreased [Unknown]
  - Breast cancer [Fatal]
  - Jaundice [Fatal]
  - White blood cell count decreased [Unknown]

NARRATIVE: CASE EVENT DATE: 20190328
